FAERS Safety Report 4808104-6 (Version None)
Quarter: 2005Q4

REPORT INFORMATION
  Report Type: 
  Country: None (occurrence: None)
  Receive Date: 20051024
  Receipt Date: 20051013
  Transmission Date: 20060501
  Serious: Yes (Life-Threatening, Hospitalization, Other)
  Sender: FDA-Public Use
  Company Number: PL-MERCK-0510POL00011

PATIENT
  Sex: Female

DRUGS (2)
  1. VIOXX [Suspect]
     Indication: OSTEOARTHRITIS
     Route: 048
     Dates: start: 20010801, end: 20040201
  2. VIOXX [Suspect]
     Indication: SPINAL OSTEOARTHRITIS
     Route: 048
     Dates: start: 20010801, end: 20040201

REACTIONS (13)
  - ACUTE MYOCARDIAL INFARCTION [None]
  - CARDIAC DISORDER [None]
  - CARDIOVASCULAR DISORDER [None]
  - CHOLELITHIASIS [None]
  - DIZZINESS [None]
  - HYPERTENSION [None]
  - HYPERTENSIVE CRISIS [None]
  - LOSS OF CONSCIOUSNESS [None]
  - MEMORY IMPAIRMENT [None]
  - MITRAL VALVE INCOMPETENCE [None]
  - MYOCARDIAL ISCHAEMIA [None]
  - TRICUSPID VALVE INCOMPETENCE [None]
  - VENTRICULAR FIBRILLATION [None]
